FAERS Safety Report 23819257 (Version 1)
Quarter: 2024Q2

REPORT INFORMATION
  Report Type: Spontaneous
  Country: FR (occurrence: FR)
  Receive Date: 20240506
  Receipt Date: 20240506
  Transmission Date: 20240716
  Serious: Yes (Hospitalization)
  Sender: FDA-Public Use
  Company Number: None

PATIENT
  Age: 77 Year
  Sex: Female

DRUGS (2)
  1. KISQALI [Suspect]
     Active Substance: RIBOCICLIB
     Indication: Hormone receptor positive breast cancer
     Dosage: UNK
     Route: 065
     Dates: start: 20231128, end: 20231228
  2. LETROZOLE [Suspect]
     Active Substance: LETROZOLE
     Indication: Hormone receptor positive breast cancer
     Dosage: UNK
     Route: 065
     Dates: start: 20231128, end: 20240216

REACTIONS (1)
  - Hepatic cytolysis [Recovered/Resolved]

NARRATIVE: CASE EVENT DATE: 20231228
